FAERS Safety Report 6613643-1 (Version None)
Quarter: 2010Q1

REPORT INFORMATION
  Report Type: 
  Country: None (occurrence: None)
  Receive Date: 20100304
  Receipt Date: 20100301
  Transmission Date: 20100710
  Serious: Yes (Other)
  Sender: FDA-Public Use
  Company Number: GB-ROCHE-686349

PATIENT
  Age: 65 Year
  Sex: Female
  Weight: 75 kg

DRUGS (2)
  1. HERCEPTIN [Suspect]
     Route: 042
  2. HERCEPTIN [Suspect]
     Route: 042
     Dates: start: 20091214

REACTIONS (2)
  - PALPITATIONS [None]
  - SUPRAVENTRICULAR TACHYCARDIA [None]
